FAERS Safety Report 22033524 (Version 1)
Quarter: 2023Q1

REPORT INFORMATION
  Report Type: Report from Study
  Country: US (occurrence: US)
  Receive Date: 20230224
  Receipt Date: 20230224
  Transmission Date: 20230417
  Serious: Yes (Death, Hospitalization)
  Sender: FDA-Public Use
  Company Number: US-JNJFOC-20230134483

PATIENT

DRUGS (2)
  1. NIRAPARIB [Suspect]
     Active Substance: NIRAPARIB
     Indication: Prostate cancer
     Dosage: 200 MG, QD
     Route: 048
     Dates: start: 20221022, end: 20230114
  2. CETRELIMAB [Suspect]
     Active Substance: CETRELIMAB
     Indication: Prostate cancer
     Dosage: 480 MG
     Route: 042
     Dates: start: 20221022, end: 20221221

REACTIONS (1)
  - Anaemia [Fatal]

NARRATIVE: CASE EVENT DATE: 20230114
